FAERS Safety Report 7107405-9 (Version None)
Quarter: 2010Q4

REPORT INFORMATION
  Report Type: 
  Country: None (occurrence: None)
  Receive Date: 20101111
  Receipt Date: 20101111
  Transmission Date: 20110411
  Serious: Yes (Other)
  Sender: FDA-Public Use
  Company Number: None

PATIENT
  Age: 50 Year
  Sex: Female
  Weight: 58.9676 kg

DRUGS (2)
  1. XOLAIR [Suspect]
     Indication: ASTHMA
     Dosage: 150MG 2 INJECTIONS
     Dates: start: 20060301, end: 20090901
  2. XOLAIR [Suspect]
     Indication: MULTIPLE ALLERGIES
     Dosage: 150MG 2 INJECTIONS
     Dates: start: 20060301, end: 20090901

REACTIONS (4)
  - BLOOD PRESSURE INCREASED [None]
  - BREAST CANCER IN SITU [None]
  - HEADACHE [None]
  - PAIN IN EXTREMITY [None]
